FAERS Safety Report 17439898 (Version 1)
Quarter: 2020Q1

REPORT INFORMATION
  Report Type: Spontaneous
  Country: CN (occurrence: CN)
  Receive Date: 20200220
  Receipt Date: 20200220
  Transmission Date: 20200409
  Serious: Yes (Life-Threatening, Other)
  Sender: FDA-Public Use
  Company Number: CN-BAYER-2020-025169

PATIENT
  Age: 65 Year
  Sex: Female
  Weight: 47.5 kg

DRUGS (1)
  1. AVELOX [Suspect]
     Active Substance: MOXIFLOXACIN HYDROCHLORIDE
     Indication: INFECTION
     Dosage: 0.4 G, QD
     Route: 041
     Dates: start: 20191003, end: 20191009

REACTIONS (5)
  - Patient uncooperative [Recovering/Resolving]
  - Hallucination [Recovering/Resolving]
  - Delirium [Recovering/Resolving]
  - Confusional state [Recovering/Resolving]
  - Mania [Recovering/Resolving]

NARRATIVE: CASE EVENT DATE: 20191008
